FAERS Safety Report 13151340 (Version 1)
Quarter: 2017Q1

REPORT INFORMATION
  Report Type: Spontaneous
  Country: US (occurrence: US)
  Receive Date: 20170125
  Receipt Date: 20170125
  Transmission Date: 20170428
  Serious: No
  Sender: FDA-Public Use
  Company Number: US-KADMON PHARMACEUTICALS, LLC-KAD201602-000530

PATIENT
  Age: 58 Year
  Sex: Male
  Weight: 79.83 kg

DRUGS (8)
  1. VIEKIRA PAK [Suspect]
     Active Substance: DASABUVIR\OMBITASVIR\PARITAPREVIR\RITONAVIR
     Indication: HEPATITIS C
     Dosage: TABLET
     Route: 048
     Dates: start: 20151230
  2. ANDRODERM [Concomitant]
     Active Substance: TESTOSTERONE
  3. IBUPROFEN. [Concomitant]
     Active Substance: IBUPROFEN
  4. RIBASPHERE [Suspect]
     Active Substance: RIBAVIRIN
     Indication: HEPATITIS C
     Dosage: THREE IN MORNING AND THREE IN EVENING
     Route: 048
     Dates: start: 20151230
  5. PROZAC [Concomitant]
     Active Substance: FLUOXETINE HYDROCHLORIDE
  6. KLONOPIN [Concomitant]
     Active Substance: CLONAZEPAM
  7. NEURONTIN [Concomitant]
     Active Substance: GABAPENTIN
  8. SUBOXONE [Concomitant]
     Active Substance: BUPRENORPHINE HYDROCHLORIDE\NALOXONE HYDROCHLORIDE

REACTIONS (4)
  - Hypersomnia [Recovered/Resolved]
  - Psychotic disorder [Recovered/Resolved]
  - Anger [Recovered/Resolved]
  - Pruritus [Recovered/Resolved]

NARRATIVE: CASE EVENT DATE: 20151230
